FAERS Safety Report 20877869 (Version 1)
Quarter: 2022Q2

REPORT INFORMATION
  Report Type: Spontaneous
  Country: US (occurrence: None)
  Receive Date: 20220526
  Receipt Date: 20220526
  Transmission Date: 20220720
  Serious: Yes (Hospitalization)
  Sender: FDA-Public Use
  Company Number: None

PATIENT
  Age: 69 Year
  Sex: Male
  Weight: 101 kg

DRUGS (1)
  1. ACYCLOVIR [Suspect]
     Active Substance: ACYCLOVIR
     Indication: Congenital herpes simplex infection
     Dosage: FREQUENCY : DAILY;?
     Route: 048
     Dates: start: 20190328, end: 20210104

REACTIONS (2)
  - Crystal nephropathy [None]
  - Acute kidney injury [None]

NARRATIVE: CASE EVENT DATE: 20210109
